FAERS Safety Report 5509956-7 (Version None)
Quarter: 2007Q4

REPORT INFORMATION
  Report Type: 
  Country: None (occurrence: None)
  Receive Date: 20071106
  Receipt Date: 20071024
  Transmission Date: 20080405
  Serious: Yes (Life-Threatening)
  Sender: FDA-Public Use
  Company Number: 2007JP004619

PATIENT
  Age: 9 Month
  Sex: Male
  Weight: 10.1 kg

DRUGS (12)
  1. TACROLIMUS [Suspect]
     Indication: LIVER TRANSPLANT
     Dosage: ORAL; 0.1 MG, ORAL
     Route: 048
     Dates: start: 20061025
  2. URSO 250 [Concomitant]
  3. ACIROVEC (ACICLOVIR) GRANULE [Concomitant]
  4. PREDNISOLONE (PREDNISOLONE) GRANULE [Concomitant]
  5. ADSORBIN (ALUMINIUM SILICATE) GRANULE [Concomitant]
  6. TANNALBIN (ALBUMIN TANNATE) GRANULE [Concomitant]
  7. TAKEPRON (LANSOPRAZOLE) GRANULE [Concomitant]
  8. BIOFERMIN (STREPTOCOCCUS FAECALIS, LACTOBACILLUS ACIDOPHILUS, BACILLUS [Concomitant]
  9. KAYEXALATE (SODIUM POLYSTYRENE SULFONATE) GRANULE [Concomitant]
  10. RIBALL GRANULE [Concomitant]
  11. PANVITAN (VITAMINS NOS) GRANULE [Concomitant]
  12. CALCIUM LACTATE (CALCIUM LACTATE) GRANULE [Concomitant]

REACTIONS (5)
  - ANAEMIA HAEMOLYTIC AUTOIMMUNE [None]
  - AUTOIMMUNE THROMBOCYTOPENIA [None]
  - EPSTEIN-BARR VIRUS INFECTION [None]
  - EVANS SYNDROME [None]
  - GENERALISED OEDEMA [None]
